FAERS Safety Report 10925423 (Version 3)
Quarter: 2015Q2

REPORT INFORMATION
  Report Type: Spontaneous
  Country: GB (occurrence: None)
  Receive Date: 20150313
  Receipt Date: 20150414
  Transmission Date: 20150821
  Serious: Yes (Death, Other)
  Sender: FDA-Public Use
  Company Number: FK201501196

PATIENT
  Age: 71 Year
  Sex: Female
  Weight: 64.3 kg

DRUGS (6)
  1. CARBOPLATIN (MANUFACTURER UNKNOWN) (CARBOPLATIN) (CARBOPLATIN) [Suspect]
     Active Substance: CARBOPLATIN
     Indication: LUNG NEOPLASM MALIGNANT
     Route: 042
     Dates: start: 20150115, end: 20150115
  2. ONDANSETRON [Concomitant]
     Active Substance: ONDANSETRON
  3. ABACAVIR [Suspect]
     Active Substance: ABACAVIR
     Indication: LUNG NEOPLASM MALIGNANT
  4. ATENOLOL. [Concomitant]
     Active Substance: ATENOLOL
  5. DEXAMETHASONE. [Concomitant]
     Active Substance: DEXAMETHASONE
  6. VINORELBINE [Suspect]
     Active Substance: VINORELBINE\VINORELBINE TARTRATE
     Indication: LUNG NEOPLASM MALIGNANT
     Route: 042

REACTIONS (11)
  - Cold sweat [None]
  - Dyspnoea [None]
  - Blood pressure decreased [None]
  - Hypersensitivity [None]
  - Heart rate decreased [None]
  - Cardiopulmonary failure [None]
  - Back pain [None]
  - Depressed level of consciousness [None]
  - Pulmonary embolism [None]
  - Malaise [None]
  - Flushing [None]

NARRATIVE: CASE EVENT DATE: 20150115
